FAERS Safety Report 8534101-3 (Version None)
Quarter: 2012Q3

REPORT INFORMATION
  Report Type: 
  Country: None (occurrence: None)
  Receive Date: 20120724
  Receipt Date: 20120718
  Transmission Date: 20120928
  Serious: Yes (Hospitalization)
  Sender: FDA-Public Use
  Company Number: AT-ROCHE-CID000000002067576

PATIENT
  Sex: Female
  Weight: 68 kg

DRUGS (8)
  1. DOXORUBICIN HCL [Suspect]
     Indication: BREAST CANCER
     Dosage: DATE OF LAST DOSE PRIOR TO SAE: 18/JUN/2012
     Route: 042
     Dates: start: 20120416
  2. EMEND [Concomitant]
  3. DEXAMETHASONE [Concomitant]
  4. NEULASTA [Concomitant]
     Indication: INFECTION
  5. MEXALEN [Concomitant]
     Dosage: BEFORE NEULASTA
  6. DOCETAXEL [Suspect]
     Indication: BREAST CANCER
     Dosage: DATE OF LAST DOSE PRIOR TO SAE: 18/JUN/2012
     Route: 042
     Dates: start: 20120416
  7. HERCEPTIN [Suspect]
     Indication: BREAST CANCER
     Dosage: DATE OF LAST DOSE PRIOR TO SAE: 18/JUN/2012
     Route: 042
     Dates: start: 20120416
  8. ZOFRAN [Concomitant]

REACTIONS (1)
  - PNEUMONIA [None]
